FAERS Safety Report 19366701 (Version 1)
Quarter: 2021Q2

REPORT INFORMATION
  Report Type: Spontaneous
  Country: US (occurrence: US)
  Receive Date: 20210603
  Receipt Date: 20210603
  Transmission Date: 20210717
  Serious: Yes (Other)
  Sender: FDA-Public Use
  Company Number: US-BAYER-2021-151658

PATIENT
  Age: 83 Year
  Sex: Male

DRUGS (4)
  1. POLYSACCHARIDE IRON [Concomitant]
     Indication: MINERAL SUPPLEMENTATION
  2. CILOSTAZOL. [Concomitant]
     Active Substance: CILOSTAZOL
  3. PLAVIX [Concomitant]
     Active Substance: CLOPIDOGREL BISULFATE
  4. ACETYLSALICYLIC ACID [Suspect]
     Active Substance: ASPIRIN

REACTIONS (1)
  - Gastrointestinal haemorrhage [None]
